FAERS Safety Report 15898487 (Version 2)
Quarter: 2025Q1

REPORT INFORMATION
  Report Type: Spontaneous
  Country: FR (occurrence: FR)
  Receive Date: 20190201
  Receipt Date: 20250220
  Transmission Date: 20250408
  Serious: Yes (Death, Hospitalization)
  Sender: ACCORD
  Company Number: None

PATIENT
  Age: 63 Year
  Sex: Male
  Weight: 84 kg

DRUGS (7)
  1. ONDANSETRON [Suspect]
     Active Substance: ONDANSETRON
     Indication: Prophylaxis of nausea and vomiting
     Dates: start: 20180511, end: 20180511
  2. FOLIC ACID [Suspect]
     Active Substance: FOLIC ACID
     Indication: Prophylaxis
     Dates: start: 20180511, end: 20180604
  3. CARBOPLATIN [Suspect]
     Active Substance: CARBOPLATIN
     Indication: Bronchial carcinoma
     Route: 041
     Dates: start: 20180511, end: 20180511
  4. EMEND [Suspect]
     Active Substance: APREPITANT
     Indication: Prophylaxis of nausea and vomiting
     Dates: start: 20180511, end: 20180513
  5. METHYLPREDNISOLONE [Suspect]
     Active Substance: METHYLPREDNISOLONE
     Indication: Prophylaxis
     Dates: start: 20180511, end: 20180511
  6. ALIMTA [Suspect]
     Active Substance: PEMETREXED DISODIUM
     Indication: Bronchial carcinoma
     Dates: start: 20180511, end: 20180511
  7. PREDNISONE [Suspect]
     Active Substance: PREDNISONE
     Indication: Prophylaxis
     Dates: start: 20180510, end: 20180512

REACTIONS (8)
  - Acute kidney injury [Fatal]
  - Diarrhoea [Fatal]
  - Melaena [Fatal]
  - Septic shock [Fatal]
  - White blood cell count increased [Fatal]
  - Inflammation [Fatal]
  - Hypotension [Fatal]
  - Asthenia [Fatal]

NARRATIVE: CASE EVENT DATE: 20180101
